FAERS Safety Report 8757267 (Version 2)
Quarter: 2013Q4

REPORT INFORMATION
  Report Type: Report from Study
  Country: US (occurrence: US)
  Receive Date: 20120828
  Receipt Date: 20131101
  Transmission Date: 20140711
  Serious: No
  Sender: FDA-Public Use
  Company Number: US-009507513-1208USA003449

PATIENT
  Age: 51 Year
  Sex: Male

DRUGS (3)
  1. PEG-INTRON [Suspect]
     Indication: HEPATITIS C
     Dosage: UNK
     Dates: start: 20120803
  2. REBETOL [Suspect]
     Indication: HEPATITIS C
     Dosage: UNK
     Dates: start: 20120803
  3. TELAPREVIR [Suspect]
     Indication: HEPATITIS C
     Dosage: UNK
     Dates: start: 20120803

REACTIONS (3)
  - Nausea [Unknown]
  - Abdominal discomfort [Unknown]
  - Fatigue [Unknown]
